FAERS Safety Report 24026934 (Version 2)
Quarter: 2024Q3

REPORT INFORMATION
  Report Type: Report from Study
  Country: BR (occurrence: BR)
  Receive Date: 20240628
  Receipt Date: 20240710
  Transmission Date: 20241016
  Serious: Yes (Hospitalization, Other)
  Sender: CELLTRION
  Company Number: BR-CELLTRION INC.-2024BR015477

PATIENT

DRUGS (8)
  1. INFLIXIMAB [Suspect]
     Active Substance: INFLIXIMAB
     Indication: Crohn^s disease
     Dosage: 4 AMPOULES EVERY 8 WEEKS (EACH AMPOULE 100 MG)
     Route: 042
     Dates: start: 20220915
  2. INFLIXIMAB [Suspect]
     Active Substance: INFLIXIMAB
     Dosage: 4 AMPOULES EVERY 8 WEEKS (EACH AMPOULE 100 MG)
     Route: 042
     Dates: start: 20240313
  3. INFLIXIMAB [Suspect]
     Active Substance: INFLIXIMAB
     Dosage: 4 AMPOULES EVERY 8 WEEKS (EACH AMPOULE 100 MG)
     Route: 042
     Dates: start: 20240627
  4. PURAN [Concomitant]
     Active Substance: LEVOTHYROXINE SODIUM
     Indication: Hypothyroidism
     Dosage: 1 PILL A DAY; START DATE: 8 YEARS AGO
     Route: 048
  5. LOSARTAN [Concomitant]
     Active Substance: LOSARTAN
     Indication: Hypertension
     Dosage: HALF PILL 2X A DAY; START DATE: 8 YEARS AGO
     Route: 048
  6. ROSUVASTATIN [Concomitant]
     Active Substance: ROSUVASTATIN
     Indication: Blood cholesterol
     Dosage: 1 PILL A DA; START DATE: RESUMED 1 MONTH AGO
     Route: 048
  7. BEPANTOL [Concomitant]
     Indication: Burning sensation
  8. NYSTATIN\ZINC OXIDE [Concomitant]
     Active Substance: NYSTATIN\ZINC OXIDE
     Indication: Burning sensation

REACTIONS (10)
  - Skin laceration [Recovering/Resolving]
  - Arterial injury [Recovering/Resolving]
  - Rhinorrhoea [Recovered/Resolved]
  - Nephrogenic anaemia [Recovering/Resolving]
  - Anaemia [Recovering/Resolving]
  - Headache [Recovered/Resolved]
  - Cough [Recovered/Resolved]
  - Pyrexia [Recovered/Resolved]
  - Haematochezia [Recovered/Resolved]
  - Intentional dose omission [Recovering/Resolving]

NARRATIVE: CASE EVENT DATE: 20240201
